FAERS Safety Report 25277837 (Version 1)
Quarter: 2025Q2

REPORT INFORMATION
  Report Type: Spontaneous
  Country: GB (occurrence: GB)
  Receive Date: 20250507
  Receipt Date: 20250507
  Transmission Date: 20250717
  Serious: Yes (Hospitalization)
  Sender: EMD SERONO INC
  Company Number: GB-Merck Healthcare KGaA-2025022514

PATIENT
  Sex: Female

DRUGS (7)
  1. SAIZEN [Suspect]
     Active Substance: SOMATROPIN
     Indication: Renal failure
     Dosage: EXPIRY DATE: JUN-2026
     Dates: start: 202301
  2. SAIZEN [Suspect]
     Active Substance: SOMATROPIN
     Indication: Growth failure
  3. OXYBUTYNIN [Concomitant]
     Active Substance: OXYBUTYNIN
     Indication: Product used for unknown indication
  4. SODIUM CARBONATE [Concomitant]
     Active Substance: SODIUM CARBONATE
     Indication: Product used for unknown indication
  5. CALCIUM CARBONATE [Concomitant]
     Active Substance: CALCIUM CARBONATE
     Indication: Product used for unknown indication
  6. CEPHALEXIN [Concomitant]
     Active Substance: CEPHALEXIN
     Indication: Product used for unknown indication
  7. CHOLECALCIFEROL [Concomitant]
     Active Substance: CHOLECALCIFEROL
     Indication: Product used for unknown indication

REACTIONS (1)
  - Infection [Unknown]
